FAERS Safety Report 11181065 (Version 4)
Quarter: 2015Q3

REPORT INFORMATION
  Report Type: Spontaneous
  Country: GB (occurrence: GB)
  Receive Date: 20150611
  Receipt Date: 20150730
  Transmission Date: 20151125
  Serious: Yes (Other)
  Sender: FDA-Public Use
  Company Number: GB-PFIZER INC-2015191351

PATIENT
  Age: 83 Year
  Sex: Female

DRUGS (2)
  1. EZETROL [Suspect]
     Active Substance: EZETIMIBE
     Indication: BLOOD CHOLESTEROL
     Dosage: UNK
     Route: 048
     Dates: start: 1985
  2. ATORVASTATIN [Suspect]
     Active Substance: ATORVASTATIN
     Indication: BLOOD CHOLESTEROL
     Dosage: UNK

REACTIONS (8)
  - Cardiac disorder [Unknown]
  - Fall [Unknown]
  - Joint injury [Unknown]
  - Brain neoplasm [Unknown]
  - Memory impairment [Unknown]
  - Balance disorder [Unknown]
  - Dyspnoea [Unknown]
  - Alopecia [Unknown]
